FAERS Safety Report 22044370 (Version 1)
Quarter: 2023Q1

REPORT INFORMATION
  Report Type: Spontaneous
  Country: HR (occurrence: HR)
  Receive Date: 20230228
  Receipt Date: 20230228
  Transmission Date: 20230417
  Serious: Yes (Other)
  Sender: FDA-Public Use
  Company Number: HR-009507513-2211HRV008390

PATIENT
  Age: 56 Year
  Sex: Male

DRUGS (1)
  1. KEYTRUDA [Suspect]
     Active Substance: PEMBROLIZUMAB
     Indication: Lung adenocarcinoma
     Dosage: UNK
     Dates: start: 202107

REACTIONS (2)
  - Pancreatitis [Unknown]
  - Tumour necrosis [Unknown]

NARRATIVE: CASE EVENT DATE: 20221101
